FAERS Safety Report 18755234 (Version 1)
Quarter: 2021Q1

REPORT INFORMATION
  Report Type: Spontaneous
  Country: US (occurrence: US)
  Receive Date: 20210117
  Receipt Date: 20210117
  Transmission Date: 20210419
  Serious: Yes (Other)
  Sender: FDA-Public Use
  Company Number: None

PATIENT
  Age: 30 Year
  Sex: Female
  Weight: 63.5 kg

DRUGS (5)
  1. CRANBERRY AND GREEN TEA EXTRACT [Concomitant]
  2. VITAMIN D [Concomitant]
     Active Substance: VITAMIN D NOS
  3. PARAGARD T 380A [Suspect]
     Active Substance: COPPER
     Dates: start: 20151107, end: 20160705
  4. ZYRTEC [Concomitant]
     Active Substance: CETIRIZINE HYDROCHLORIDE
  5. LAVELLA WS 1265 [Concomitant]

REACTIONS (6)
  - Device dislocation [None]
  - Abortion induced [None]
  - Vulvovaginal pain [None]
  - Pregnancy with contraceptive device [None]
  - Device breakage [None]
  - Neck pain [None]

NARRATIVE: CASE EVENT DATE: 20160625
